FAERS Safety Report 20082789 (Version 1)
Quarter: 2021Q4

REPORT INFORMATION
  Report Type: Report from Study
  Country: US (occurrence: US)
  Receive Date: 20211117
  Receipt Date: 20211117
  Transmission Date: 20220303
  Serious: Yes (Hospitalization, Other)
  Sender: FDA-Public Use
  Company Number: US-BAYER-2021A246097

PATIENT
  Age: 69 Year
  Sex: Female

DRUGS (2)
  1. STIVARGA [Suspect]
     Active Substance: REGORAFENIB
     Indication: Colorectal cancer
     Dosage: DAILY DOSE 120 MG WITH LOW FAT MEAL FOR 21 DAYS ON, 7 DAYS OFF
     Route: 048
     Dates: start: 20211030, end: 20211104
  2. STIVARGA [Suspect]
     Active Substance: REGORAFENIB
     Indication: Colorectal cancer
     Dosage: DAILY DOSE 80 MG 21 DAYS ON/7 DAYS OFF
     Route: 048
     Dates: start: 20211116

REACTIONS (5)
  - Haematemesis [Recovered/Resolved]
  - Somnolence [Recovered/Resolved]
  - Abdominal distension [None]
  - Fatigue [None]
  - Off label use [Unknown]

NARRATIVE: CASE EVENT DATE: 20211030
